FAERS Safety Report 5232157-7 (Version None)
Quarter: 2007Q1

REPORT INFORMATION
  Report Type: 
  Country: None (occurrence: None)
  Receive Date: 20061205
  Receipt Date: 20060901
  Transmission Date: 20070707
  Serious: No
  Sender: FDA-Public Use
  Company Number: PHEH2006US11298

PATIENT
  Age: 73 Year
  Sex: Female

DRUGS (1)
  1. EXJADE [Suspect]
     Dosage: 1250 MG,QD,ORAL
     Route: 048
     Dates: end: 20060525

REACTIONS (2)
  - CELLULITIS [None]
  - CLOSTRIDIUM DIFFICILE COLITIS [None]
